FAERS Safety Report 21889496 (Version 1)
Quarter: 2023Q1

REPORT INFORMATION
  Report Type: Spontaneous
  Country: ES (occurrence: ES)
  Receive Date: 20230120
  Receipt Date: 20230120
  Transmission Date: 20230417
  Serious: Yes (Other)
  Sender: FDA-Public Use
  Company Number: None

PATIENT
  Age: 70 Year
  Sex: Female

DRUGS (4)
  1. DEXKETOPROFEN [Suspect]
     Active Substance: DEXKETOPROFEN
     Indication: Pain
     Dosage: 75 MILLIGRAM DAILY; 25MG /8H  ,(7312A)
     Dates: start: 20220312, end: 20220318
  2. PANTOPRAZOLE [Suspect]
     Active Substance: PANTOPRAZOLE
     Indication: Prophylaxis
     Dosage: 40 MG ,(7275A)
     Dates: start: 20220310, end: 20220318
  3. CLOXACILLIN [Suspect]
     Active Substance: CLOXACILLIN
     Indication: Osteomyelitis
     Dosage: 12 GRAM DAILY; 2GR/4H  ,(89A)
     Dates: start: 20220311, end: 20220315
  4. CEFAZOLIN SODIUM [Suspect]
     Active Substance: CEFAZOLIN SODIUM
     Indication: Osteomyelitis
     Dosage: (583A)
     Dates: start: 20220310, end: 20220318

REACTIONS (1)
  - Mixed liver injury [Recovered/Resolved]

NARRATIVE: CASE EVENT DATE: 20220314
